FAERS Safety Report 24731946 (Version 2)
Quarter: 2024Q4

REPORT INFORMATION
  Report Type: Spontaneous
  Country: US (occurrence: US)
  Receive Date: 20241213
  Receipt Date: 20241227
  Transmission Date: 20250114
  Serious: No
  Sender: RISING PHARMACEUTICALS
  Company Number: US-RISINGPHARMA-US-2024RISSPO00479

PATIENT
  Age: 56 Year
  Sex: Female

DRUGS (1)
  1. AMITRIPTYLINE HYDROCHLORIDE [Suspect]
     Active Substance: AMITRIPTYLINE HYDROCHLORIDE
     Indication: Sleep disorder
     Route: 065
     Dates: start: 20241021

REACTIONS (2)
  - Drug ineffective for unapproved indication [Unknown]
  - Product substitution issue [Unknown]
